FAERS Safety Report 8876112 (Version 1)
Quarter: 2012Q4

REPORT INFORMATION
  Report Type: Report from Study
  Country: BR (occurrence: BR)
  Receive Date: 20121023
  Receipt Date: 20121023
  Transmission Date: 20130627
  Serious: Yes (Hospitalization, Other)
  Sender: FDA-Public Use
  Company Number: BR-ROCHE-1137473

PATIENT
  Sex: Female
  Weight: 78 kg

DRUGS (6)
  1. TOCILIZUMAB [Suspect]
     Indication: RHEUMATOID ARTHRITIS
     Dosage: last infusion was on 01-Aug-2012.
     Route: 042
     Dates: start: 20100324
  2. ENALAPRIL [Concomitant]
     Indication: HYPERTENSION
  3. CITALOPRAM [Concomitant]
  4. CORTICOID [Concomitant]
  5. METHOTREXATE [Concomitant]
  6. ARAVA [Concomitant]

REACTIONS (2)
  - Carpal tunnel syndrome [Recovering/Resolving]
  - Rheumatoid nodule [Recovering/Resolving]
